FAERS Safety Report 11181965 (Version 3)
Quarter: 2016Q3

REPORT INFORMATION
  Report Type: Spontaneous
  Country: US (occurrence: US)
  Receive Date: 20150611
  Receipt Date: 20160915
  Transmission Date: 20161109
  Serious: No
  Sender: FDA-Public Use
  Company Number: US-ASTELLAS-2015US015665

PATIENT
  Age: 84 Year
  Sex: Male

DRUGS (1)
  1. XTANDI [Suspect]
     Active Substance: ENZALUTAMIDE
     Indication: PROSTATE CANCER
     Dosage: 160 MG (40 MG X 4 CAPSULES), ONCE DAILY
     Route: 048
     Dates: start: 20150411, end: 201511

REACTIONS (23)
  - Eating disorder [Unknown]
  - Pain in extremity [Unknown]
  - Arthralgia [Unknown]
  - Arthralgia [Unknown]
  - Fatigue [Unknown]
  - Ill-defined disorder [Recovering/Resolving]
  - Hot flush [Unknown]
  - Asthenia [Unknown]
  - Bone pain [Unknown]
  - Malaise [Unknown]
  - Blood urine present [Unknown]
  - Decreased appetite [Unknown]
  - Nausea [Unknown]
  - Hot flush [Unknown]
  - Dizziness [Unknown]
  - Gait disturbance [Recovering/Resolving]
  - Muscular weakness [Recovering/Resolving]
  - Dyspnoea [Recovering/Resolving]
  - Dysphagia [Unknown]
  - Weight decreased [Unknown]
  - Product size issue [Unknown]
  - Somnolence [Unknown]
  - Drug dose omission [Unknown]

NARRATIVE: CASE EVENT DATE: 20150505
